FAERS Safety Report 7859027-X (Version None)
Quarter: 2011Q4

REPORT INFORMATION
  Report Type: 
  Country: None (occurrence: None)
  Receive Date: 20111027
  Receipt Date: 20111017
  Transmission Date: 20120403
  Serious: Yes (Hospitalization)
  Sender: FDA-Public Use
  Company Number: US-JNJFOC-20110706797

PATIENT
  Sex: Male
  Weight: 35 kg

DRUGS (10)
  1. CIMZIA [Suspect]
     Indication: PRODUCT USED FOR UNKNOWN INDICATION
     Dates: start: 20101028
  2. PROBIOTICS [Concomitant]
  3. VITAMIN D [Concomitant]
  4. REMICADE [Suspect]
     Indication: INFLAMMATORY BOWEL DISEASE
     Route: 042
     Dates: start: 20101227
  5. REMICADE [Suspect]
     Route: 042
     Dates: start: 20110110
  6. FERROUS SULFATE TAB [Concomitant]
  7. FISH OIL [Concomitant]
  8. JUICE PLUS [Concomitant]
  9. CALCIUM CARBONATE [Concomitant]
  10. VITAMIN B-12 [Concomitant]

REACTIONS (2)
  - CLOSTRIDIAL INFECTION [None]
  - SMALL INTESTINAL OBSTRUCTION [None]
